FAERS Safety Report 11510751 (Version 6)
Quarter: 2016Q4

REPORT INFORMATION
  Report Type: Spontaneous
  Country: US (occurrence: US)
  Receive Date: 20150915
  Receipt Date: 20161228
  Transmission Date: 20170206
  Serious: Yes (Hospitalization, Other)
  Sender: FDA-Public Use
  Company Number: US-PFIZER INC-2015307066

PATIENT
  Age: 70 Year
  Sex: Female
  Weight: 82 kg

DRUGS (13)
  1. REVATIO [Suspect]
     Active Substance: SILDENAFIL CITRATE
     Indication: DYSPNOEA
     Dosage: 20 MG, 3X/DAY
  2. XIFAXAN [Concomitant]
     Active Substance: RIFAXIMIN
     Indication: FUNCTIONAL GASTROINTESTINAL DISORDER
  3. TRAMADOL. [Concomitant]
     Active Substance: TRAMADOL
     Dosage: 100 MG, EVERY 4 TO 6 HOURS AS NEEDED
     Dates: start: 2015
  4. LEVOTHYROXINE. [Concomitant]
     Active Substance: LEVOTHYROXINE
     Indication: THYROID DISORDER
     Dosage: 0.075 MG, DAILY
     Dates: start: 1990
  5. LEVEMIR [Concomitant]
     Active Substance: INSULIN DETEMIR
     Indication: DIABETES MELLITUS
     Dosage: 15 IU, 1X/DAY
     Dates: start: 2015
  6. PROPRANOLOL [Concomitant]
     Active Substance: PROPRANOLOL\PROPRANOLOL HYDROCHLORIDE
     Dosage: 10 MG, 2X/DAY
     Dates: start: 2007
  7. RANITIDINE. [Concomitant]
     Active Substance: RANITIDINE
     Indication: GASTROOESOPHAGEAL REFLUX DISEASE
     Dosage: 300 MG, TWICE A DAY AS NEEDED
     Dates: start: 2007
  8. URSODIOL. [Concomitant]
     Active Substance: URSODIOL
     Indication: HEPATIC CIRRHOSIS
     Dosage: 300 MG, 2X/DAY
     Route: 048
     Dates: start: 2007
  9. XIFAXAN [Concomitant]
     Active Substance: RIFAXIMIN
     Indication: AMMONIA ABNORMAL
     Dosage: 550 MG, 2X/DAY
     Dates: start: 2010
  10. REVATIO [Suspect]
     Active Substance: SILDENAFIL CITRATE
     Indication: PULMONARY HYPERTENSION
     Dosage: 40 MG, 3X/DAY (2 TABS 3X/DAY)
     Route: 048
     Dates: start: 2008
  11. SPIRONOLACTONE. [Concomitant]
     Active Substance: SPIRONOLACTONE
     Indication: FLUID RETENTION
     Dosage: 50 MG, 1X/DAY (100MG TABLET, SHE TAKES A HALF TABLET ONCE A DAY)
     Dates: start: 2007
  12. TRAMADOL. [Concomitant]
     Active Substance: TRAMADOL
     Dosage: 50 MG, AS NEEDED (1 OR 2 EVERY 6 HOURS AS NEEDED)
  13. REVATIO [Suspect]
     Active Substance: SILDENAFIL CITRATE
     Dosage: UNK

REACTIONS (3)
  - Femur fracture [Not Recovered/Not Resolved]
  - Fall [Recovered/Resolved]
  - Hip fracture [Not Recovered/Not Resolved]

NARRATIVE: CASE EVENT DATE: 20150517
